FAERS Safety Report 5956727-3 (Version None)
Quarter: 2008Q4

REPORT INFORMATION
  Report Type: 
  Country: None (occurrence: None)
  Receive Date: 20081031
  Receipt Date: 20080808
  Transmission Date: 20090506
  Serious: No
  Sender: FDA-Public Use
  Company Number: 2008PV036394

PATIENT
  Age: 75 Year
  Sex: Female

DRUGS (6)
  1. SYMLIN [Suspect]
     Indication: TYPE 2 DIABETES MELLITUS
     Dosage: 60 MCG;TID;SC
     Route: 058
     Dates: start: 20080101, end: 20080807
  2. SYMLIN [Suspect]
     Indication: TYPE 2 DIABETES MELLITUS
     Dosage: PRN;SC
     Route: 058
     Dates: start: 20071001, end: 20080101
  3. NOVOLOG [Concomitant]
  4. LANTUS [Concomitant]
  5. ALLOPURINOL [Concomitant]
  6. 3 BLOOD PRESSURE PILLS [Concomitant]

REACTIONS (2)
  - BLOOD GLUCOSE INCREASED [None]
  - GOUT [None]
